FAERS Safety Report 24326690 (Version 3)
Quarter: 2024Q4

REPORT INFORMATION
  Report Type: Spontaneous
  Country: FR (occurrence: FR)
  Receive Date: 20240917
  Receipt Date: 20241003
  Transmission Date: 20250114
  Serious: Yes (Other)
  Sender: ROCHE
  Company Number: FR-ROCHE-10000076080

PATIENT
  Age: 74 Year
  Sex: Female

DRUGS (2)
  1. VABYSMO [Suspect]
     Active Substance: FARICIMAB-SVOA
     Indication: Neovascular age-related macular degeneration
     Dosage: 4 INJECTIONS
     Route: 050
     Dates: start: 20231212, end: 20240516
  2. LUCENTIS [Concomitant]
     Active Substance: RANIBIZUMAB
     Indication: Neovascular age-related macular degeneration
     Dosage: EVERY 4 TO 5 WEEKS
     Dates: start: 201809

REACTIONS (1)
  - Uterine leiomyoma necrosis [Recovered/Resolved with Sequelae]

NARRATIVE: CASE EVENT DATE: 20240626
